FAERS Safety Report 7311186-3 (Version None)
Quarter: 2011Q1

REPORT INFORMATION
  Report Type: 
  Country: None (occurrence: None)
  Receive Date: 20110119
  Receipt Date: 20100823
  Transmission Date: 20110831
  Serious: Yes (Hospitalization)
  Sender: FDA-Public Use
  Company Number: A-NJ2010-39230

PATIENT
  Age: 58 Year
  Sex: Female

DRUGS (4)
  1. TRACLEER [Suspect]
     Indication: PULMONARY ARTERIAL HYPERTENSION
     Dosage: ORAL, 62.5 MG, BID, ORAL
     Route: 048
     Dates: start: 20061201, end: 20100101
  2. TRACLEER [Suspect]
     Indication: PULMONARY ARTERIAL HYPERTENSION
     Dosage: ORAL, 62.5 MG, BID, ORAL
     Route: 048
     Dates: start: 20100101
  3. CELLCEPT [Concomitant]
  4. COUMADIN [Concomitant]

REACTIONS (6)
  - FATIGUE [None]
  - LUNG INFECTION [None]
  - COUGH [None]
  - CHEST PAIN [None]
  - PYREXIA [None]
  - PAIN [None]
